FAERS Safety Report 12435007 (Version 1)
Quarter: 2016Q2

REPORT INFORMATION
  Report Type: Spontaneous
  Country: US (occurrence: US)
  Receive Date: 20160603
  Receipt Date: 20160603
  Transmission Date: 20160815
  Serious: No
  Sender: FDA-Public Use
  Company Number: US-ROCHE-1446393

PATIENT
  Sex: Female

DRUGS (3)
  1. XELODA [Suspect]
     Active Substance: CAPECITABINE
     Route: 048
     Dates: start: 20140508
  2. XELODA [Suspect]
     Active Substance: CAPECITABINE
     Indication: NEOPLASM MALIGNANT
     Dosage: 1000MG PM, ON FOR 7 DAYS AND OFF FOR 7 DAYS
     Route: 048
     Dates: start: 20140328
  3. XELODA [Suspect]
     Active Substance: CAPECITABINE
     Dosage: 1500MG AM, ON FOR 7 DAYS AND OFF FOR 7 DAYS
     Route: 048
     Dates: start: 20140328

REACTIONS (5)
  - Erythema [Unknown]
  - Pain in extremity [Unknown]
  - Dry skin [Not Recovered/Not Resolved]
  - Tenderness [Unknown]
  - Thermal burn [Unknown]
